FAERS Safety Report 23201697 (Version 1)
Quarter: 2023Q4

REPORT INFORMATION
  Report Type: Spontaneous
  Country: US (occurrence: None)
  Receive Date: 20231118
  Receipt Date: 20231118
  Transmission Date: 20240109
  Serious: Yes (Death)
  Sender: FDA-Public Use
  Company Number: None

PATIENT
  Age: 68 Year
  Sex: Male

DRUGS (10)
  1. AMBRISENTAN [Suspect]
     Active Substance: AMBRISENTAN
     Indication: Pulmonary hypertension
     Dosage: FREQUENCY : DAILY;?
     Route: 048
  2. ADCIRCA [Concomitant]
     Active Substance: TADALAFIL
     Dates: start: 20180713
  3. PRAVASTATIN [Concomitant]
     Active Substance: PRAVASTATIN
     Dates: start: 20180713
  4. MONTELUKAST [Concomitant]
     Active Substance: MONTELUKAST SODIUM
     Dates: start: 20180713
  5. ASPIRIN [Concomitant]
     Active Substance: ASPIRIN
     Dates: start: 20180713
  6. LEVEMIR [Concomitant]
     Active Substance: INSULIN DETEMIR
     Dates: start: 20180713
  7. NOVOLOG [Concomitant]
     Active Substance: INSULIN ASPART
     Dates: start: 20180713
  8. QVAR [Concomitant]
     Active Substance: BECLOMETHASONE DIPROPIONATE
     Dates: start: 20180713
  9. SENSIPAR [Concomitant]
     Active Substance: CINACALCET HYDROCHLORIDE
     Dates: start: 20180713
  10. ASMANEX HFA [Concomitant]
     Active Substance: MOMETASONE FUROATE
     Dates: start: 20180713

REACTIONS (1)
  - Death [None]

NARRATIVE: CASE EVENT DATE: 20231108
